FAERS Safety Report 8369187-2 (Version None)
Quarter: 2012Q2

REPORT INFORMATION
  Report Type: 
  Country: None (occurrence: None)
  Receive Date: 20120518
  Receipt Date: 20120511
  Transmission Date: 20120825
  Serious: Yes (Other)
  Sender: FDA-Public Use
  Company Number: US-BAYER-2012-047494

PATIENT
  Age: 48 Year
  Sex: Female
  Weight: 109.3 kg

DRUGS (18)
  1. DROSPIRENONE AND ETHINYL ESTRADIOL [Suspect]
  2. DILAUDID [Concomitant]
     Dosage: 2 MG, UNK
     Route: 030
     Dates: start: 20100330
  3. KLOR-CON M10 [Concomitant]
     Dosage: 10 MEQ, QD
     Route: 048
     Dates: start: 20100401
  4. PREDNISONE [Concomitant]
     Dosage: 20 MG, UNK
     Route: 048
     Dates: start: 20100324
  5. TRAMADOL HYDROCHLORIDE [Concomitant]
     Dosage: 100 MG, QID
     Route: 048
     Dates: start: 20100330
  6. PERCOCET [Concomitant]
  7. SKELAXIN [Concomitant]
     Indication: NECK PAIN
     Dosage: 800 MG, TID
     Route: 048
     Dates: start: 20100324
  8. HYDROCODONE BITARTRATE + ACETAMINOPHEN [Concomitant]
     Dosage: 1 TABLET, QID
     Route: 048
     Dates: start: 20100330
  9. VALIUM [Concomitant]
     Dosage: 5 MG, BID
     Route: 048
  10. AMBIEN [Concomitant]
     Dosage: 10 MG, AT BEDTIME AS NEEDED
     Route: 048
     Dates: start: 20060322
  11. DIOVAN HCT [Concomitant]
     Dosage: 320 - 25 MG
     Route: 048
     Dates: start: 20080115
  12. PHENERGAN [Concomitant]
     Dosage: 25 MG, UNK
     Route: 030
     Dates: start: 20100330
  13. VITAMIN D [Concomitant]
     Dosage: 50000 U, UNK
     Route: 048
     Dates: start: 20100405
  14. PERCOCET [Concomitant]
     Dosage: 1 TABLET, QID
     Route: 048
  15. CELECOXIB [Concomitant]
     Indication: PAIN
     Dosage: 200 MG, TWICE A DAY AS NEEDED
     Route: 048
     Dates: start: 20100420
  16. LYRICA [Concomitant]
     Indication: NEURALGIA
     Dosage: 50-75 MG +#8211; 2 3 TIMES A DAY
     Route: 048
     Dates: start: 20091021
  17. TORADOL [Concomitant]
     Dosage: 60 MG, UNK
     Route: 030
     Dates: start: 20100330
  18. DICLOFENAC SODIUM [Concomitant]
     Dosage: 75 MG, UNK
     Route: 048
     Dates: start: 20100330

REACTIONS (1)
  - DEEP VEIN THROMBOSIS [None]
